FAERS Safety Report 11200036 (Version 1)
Quarter: 2015Q2

REPORT INFORMATION
  Report Type: Spontaneous
  Country: US (occurrence: US)
  Receive Date: 20150618
  Receipt Date: 20150618
  Transmission Date: 20150821
  Serious: No
  Sender: FDA-Public Use
  Company Number: US-TAKEDA-2015TUS003431

PATIENT
  Age: 54 Year
  Sex: Male
  Weight: 81.63 kg

DRUGS (1)
  1. ULORIC [Suspect]
     Active Substance: FEBUXOSTAT
     Indication: GOUT
     Dosage: 40 MG, QD
     Route: 048
     Dates: start: 20150228, end: 20150309

REACTIONS (4)
  - Myositis [Recovering/Resolving]
  - Hypokinesia [Recovered/Resolved]
  - Dehydration [Recovered/Resolved]
  - Joint stiffness [Recovering/Resolving]

NARRATIVE: CASE EVENT DATE: 20150310
